FAERS Safety Report 23795944 (Version 1)
Quarter: 2024Q2

REPORT INFORMATION
  Report Type: Report from Study
  Country: BR (occurrence: BR)
  Receive Date: 20240429
  Receipt Date: 20240429
  Transmission Date: 20240715
  Serious: Yes (Other)
  Sender: FDA-Public Use
  Company Number: BR-BIOGEN-2024BI01262129

PATIENT
  Age: 41 Year
  Sex: Female
  Weight: 47 kg

DRUGS (1)
  1. TYSABRI [Suspect]
     Active Substance: NATALIZUMAB
     Indication: Multiple sclerosis
     Route: 050
     Dates: start: 20230419

REACTIONS (2)
  - Leukoencephalopathy [Not Recovered/Not Resolved]
  - Cerebral atrophy [Not Recovered/Not Resolved]

NARRATIVE: CASE EVENT DATE: 20240401
